FAERS Safety Report 4781025-3 (Version None)
Quarter: 2005Q3

REPORT INFORMATION
  Report Type: 
  Country: None (occurrence: None)
  Receive Date: 20050928
  Receipt Date: 20050916
  Transmission Date: 20060218
  Serious: Yes (Hospitalization)
  Sender: FDA-Public Use
  Company Number: DE-JNJFOC-20050904465

PATIENT
  Sex: Female

DRUGS (1)
  1. REMINYL [Suspect]
     Route: 048

REACTIONS (1)
  - GASTRIC ULCER HELICOBACTER [None]
